FAERS Safety Report 6370962-4 (Version None)
Quarter: 2009Q3

REPORT INFORMATION
  Report Type: 
  Country: None (occurrence: None)
  Receive Date: 20090923
  Receipt Date: 20070917
  Transmission Date: 20100115
  Serious: Yes (Other)
  Sender: FDA-Public Use
  Company Number: US-ASTRAZENECA-2006UW22361

PATIENT
  Age: 51 Year
  Sex: Male
  Weight: 110.7 kg

DRUGS (23)
  1. SEROQUEL [Suspect]
     Indication: PARANOIA
     Route: 048
     Dates: start: 20010101, end: 20040101
  2. SEROQUEL [Suspect]
     Indication: DEPRESSION
     Route: 048
     Dates: start: 20010101, end: 20040101
  3. SEROQUEL [Suspect]
     Indication: ANXIETY
     Route: 048
     Dates: start: 20010101, end: 20040101
  4. SEROQUEL [Suspect]
     Dosage: 25-75 MG
     Route: 048
     Dates: start: 20011003
  5. SEROQUEL [Suspect]
     Dosage: 25-75 MG
     Route: 048
     Dates: start: 20011003
  6. SEROQUEL [Suspect]
     Dosage: 25-75 MG
     Route: 048
     Dates: start: 20011003
  7. NORVASC [Concomitant]
     Route: 048
     Dates: start: 20060712
  8. CELEBREX [Concomitant]
     Route: 048
     Dates: start: 20010321
  9. PREVACID [Concomitant]
     Route: 048
     Dates: start: 20010321
  10. INSULIN [Concomitant]
     Dosage: 15 UNITS AT NIGHT
     Route: 003
     Dates: start: 20061108
  11. GLIPIZIDE [Concomitant]
     Dosage: 5-7.5 MG
     Route: 048
     Dates: start: 20030213, end: 20061108
  12. GEMFIBROZIL [Concomitant]
     Route: 048
     Dates: start: 20030407
  13. LISINOPRIL [Concomitant]
     Route: 048
     Dates: start: 20060925
  14. NEURONTIN [Concomitant]
     Dosage: 800-2400 MG
     Route: 048
     Dates: start: 20010313
  15. AVANDIA [Concomitant]
     Route: 048
     Dates: start: 20031212, end: 20060712
  16. COZAAR [Concomitant]
     Route: 048
     Dates: start: 20030407
  17. METFORMIN HCL [Concomitant]
     Route: 048
     Dates: start: 20060712
  18. AMITRIPTYLINE [Concomitant]
     Dosage: 25-75 MG
     Route: 048
     Dates: start: 20010824
  19. LAMICTAL [Concomitant]
     Route: 048
     Dates: start: 20010118
  20. CELEXA [Concomitant]
     Route: 048
     Dates: start: 20020114
  21. TRAZODONE [Concomitant]
     Route: 048
     Dates: start: 20020114
  22. SERZONE [Concomitant]
     Route: 048
     Dates: start: 20011206
  23. GLUCOVANCE [Concomitant]
     Dosage: 5/500 MG DAILY
     Route: 048
     Dates: start: 20071006

REACTIONS (3)
  - DIABETES MELLITUS [None]
  - DIABETES MELLITUS INADEQUATE CONTROL [None]
  - TYPE 2 DIABETES MELLITUS [None]
